FAERS Safety Report 10970447 (Version 1)
Quarter: 2015Q1

REPORT INFORMATION
  Report Type: Report from Study
  Country: JP (occurrence: JP)
  Receive Date: 20150331
  Receipt Date: 20150331
  Transmission Date: 20150721
  Serious: Yes (Hospitalization)
  Sender: FDA-Public Use
  Company Number: JP-EISAI MEDICAL RESEARCH-EC-2015-005430

PATIENT
  Age: 3 Year
  Sex: Male
  Weight: 12.3 kg

DRUGS (14)
  1. MUCODYNE [Concomitant]
     Active Substance: CARBOCYSTEINE
  2. PULMICORT TURBUHALER [Concomitant]
     Active Substance: BUDESONIDE
  3. MUCOSAL [Concomitant]
  4. L-CARTIN [Concomitant]
     Active Substance: LEVOCARNITINE HYDROCHLORIDE
  5. LAMICTAL [Concomitant]
     Active Substance: LAMOTRIGINE
  6. CERCINE [Concomitant]
     Active Substance: DIAZEPAM
  7. PHENOBAL [Concomitant]
     Active Substance: PHENOBARBITAL
  8. ARTANE [Concomitant]
     Active Substance: TRIHEXYPHENIDYL HYDROCHLORIDE
  9. SODIUM VALPROATE [Concomitant]
     Active Substance: VALPROATE SODIUM
  10. INOVELON [Suspect]
     Active Substance: RUFINAMIDE
     Indication: LENNOX-GASTAUT SYNDROME
     Route: 048
     Dates: start: 20131217, end: 20131219
  11. INOVELON [Suspect]
     Active Substance: RUFINAMIDE
     Route: 048
     Dates: start: 20131220, end: 20131221
  12. EXCEGRAN [Concomitant]
     Active Substance: ZONISAMIDE
  13. ONON [Concomitant]
     Active Substance: PRANLUKAST
  14. GASTER [Concomitant]
     Active Substance: FAMOTIDINE

REACTIONS (1)
  - Rhabdomyolysis [Recovering/Resolving]

NARRATIVE: CASE EVENT DATE: 20131221
